FAERS Safety Report 6774264-3 (Version None)
Quarter: 2010Q2

REPORT INFORMATION
  Report Type: 
  Country: None (occurrence: None)
  Receive Date: 20100520
  Receipt Date: 20090416
  Transmission Date: 20101027
  Serious: Yes (Death, Hospitalization, Other)
  Sender: FDA-Public Use
  Company Number: 2005090790

PATIENT
  Age: 63 Year
  Sex: Female

DRUGS (7)
  1. PROVERA [Suspect]
     Indication: HORMONE REPLACEMENT THERAPY
     Dosage: , ORAL
     Route: 048
     Dates: start: 19880101, end: 19960101
  2. PROVERA [Suspect]
     Indication: MENOPAUSE
     Dosage: , ORAL
     Route: 048
     Dates: start: 19880101, end: 19960101
  3. PREMARIN [Suspect]
     Indication: HORMONE REPLACEMENT THERAPY
     Dates: start: 19880101, end: 19960101
  4. PREMARIN [Suspect]
     Indication: MENOPAUSE
     Dates: start: 19880101, end: 19960101
  5. SYNTHROID [Concomitant]
  6. GLUCOPHAGE [Concomitant]
  7. AVANDIA [Concomitant]

REACTIONS (1)
  - BREAST CANCER [None]
